FAERS Safety Report 6875903-9 (Version None)
Quarter: 2010Q3

REPORT INFORMATION
  Report Type: 
  Country: None (occurrence: None)
  Receive Date: 20100723
  Receipt Date: 20100721
  Transmission Date: 20110219
  Serious: Yes (Other)
  Sender: FDA-Public Use
  Company Number: 2010SP038136

PATIENT
  Sex: Male

DRUGS (3)
  1. AVANZA (MIRTAZAPINE / 01293201 / ) [Suspect]
     Indication: PRODUCT USED FOR UNKNOWN INDICATION
  2. AVAPRO [Concomitant]
  3. LEXOTAN [Concomitant]

REACTIONS (5)
  - DIZZINESS [None]
  - DIZZINESS POSTURAL [None]
  - SOMNOLENCE [None]
  - VISION BLURRED [None]
  - VISUAL IMPAIRMENT [None]
